FAERS Safety Report 12539878 (Version 1)
Quarter: 2016Q3

REPORT INFORMATION
  Report Type: Spontaneous
  Country: US (occurrence: US)
  Receive Date: 20160708
  Receipt Date: 20160708
  Transmission Date: 20161109
  Serious: No
  Sender: FDA-Public Use
  Company Number: US-BEH-2016070303

PATIENT
  Sex: Female
  Weight: 79.37 kg

DRUGS (25)
  1. CELEBREX [Concomitant]
     Active Substance: CELECOXIB
  2. OXYGEN. [Concomitant]
     Active Substance: OXYGEN
  3. IPRATROPIUM/ALBUTEROL [Concomitant]
     Active Substance: ALBUTEROL\IPRATROPIUM
  4. OPANA ER [Concomitant]
     Active Substance: OXYMORPHONE HYDROCHLORIDE
  5. ACETAMINOPHEN. [Concomitant]
     Active Substance: ACETAMINOPHEN
  6. HIZENTRA [Suspect]
     Active Substance: HUMAN IMMUNOGLOBULIN G
     Dosage: UNK
     Route: 058
  7. AMBIEN [Concomitant]
     Active Substance: ZOLPIDEM TARTRATE
  8. TRAZODONE [Concomitant]
     Active Substance: TRAZODONE HYDROCHLORIDE
  9. DIPHENHYDRAMINE. [Concomitant]
     Active Substance: DIPHENHYDRAMINE
  10. PANTOPRAZOLE [Concomitant]
     Active Substance: PANTOPRAZOLE SODIUM
  11. SIMVASTATIN. [Concomitant]
     Active Substance: SIMVASTATIN
  12. ADVAIR HFA [Concomitant]
     Active Substance: FLUTICASONE PROPIONATE\SALMETEROL XINAFOATE
  13. ASPIRIN (E.C.) [Concomitant]
     Active Substance: ASPIRIN
  14. EPIPEN [Concomitant]
     Active Substance: EPINEPHRINE
  15. CYMBALTA [Concomitant]
     Active Substance: DULOXETINE HYDROCHLORIDE
  16. XOLAIR [Concomitant]
     Active Substance: OMALIZUMAB
  17. PROVENTIL [Concomitant]
     Active Substance: ALBUTEROL
  18. ROPINIROLE. [Concomitant]
     Active Substance: ROPINIROLE
  19. HIZENTRA [Suspect]
     Active Substance: HUMAN IMMUNOGLOBULIN G
     Dosage: 12 G, QW
     Route: 058
  20. LORAZEPAM. [Concomitant]
     Active Substance: LORAZEPAM
  21. ALPRAZOLAM. [Concomitant]
     Active Substance: ALPRAZOLAM
  22. HIZENTRA [Suspect]
     Active Substance: HUMAN IMMUNOGLOBULIN G
     Indication: IMMUNODEFICIENCY COMMON VARIABLE
     Dosage: UNK
     Route: 058
  23. FOSAMAX [Concomitant]
     Active Substance: ALENDRONATE SODIUM
  24. NORTRIPTYLINE [Concomitant]
     Active Substance: NORTRIPTYLINE
  25. OXYCODONE AND ACETAMINOPHEN [Concomitant]
     Active Substance: ACETAMINOPHEN\OXYCODONE HYDROCHLORIDE

REACTIONS (1)
  - Upper respiratory tract infection [Recovered/Resolved]
